FAERS Safety Report 23287557 (Version 1)
Quarter: 2023Q4

REPORT INFORMATION
  Report Type: Spontaneous
  Country: US (occurrence: US)
  Receive Date: 20231212
  Receipt Date: 20231212
  Transmission Date: 20240110
  Serious: Yes (Hospitalization)
  Sender: FDA-Public Use
  Company Number: US-BRISTOL-MYERS SQUIBB COMPANY-2023-179178

PATIENT
  Age: 81 Year
  Sex: Male
  Weight: 107.5 kg

DRUGS (1)
  1. REVLIMID [Suspect]
     Active Substance: LENALIDOMIDE
     Indication: Plasma cell myeloma
     Dosage: 3WKSON/1WKOFF (3 WEEKS ON/1 WEEK OFF)
     Route: 048
     Dates: start: 20230801

REACTIONS (3)
  - COVID-19 [Unknown]
  - Decreased appetite [Unknown]
  - Ageusia [Unknown]
